FAERS Safety Report 8388131-5 (Version None)
Quarter: 2012Q2

REPORT INFORMATION
  Report Type: 
  Country: None (occurrence: None)
  Receive Date: 20120525
  Receipt Date: 20120518
  Transmission Date: 20120825
  Serious: Yes (Hospitalization, Other)
  Sender: FDA-Public Use
  Company Number: BR-PFIZER INC-2012117964

PATIENT
  Age: 25 Year
  Sex: Female
  Weight: 57 kg

DRUGS (1)
  1. DEPO-PROVERA [Suspect]
     Indication: CONTRACEPTION
     Dosage: 150 MG, EVERY 3 MONTHS
     Route: 030
     Dates: start: 20120302

REACTIONS (7)
  - ABORTION SPONTANEOUS [None]
  - PAIN [None]
  - UNINTENDED PREGNANCY [None]
  - FEELING ABNORMAL [None]
  - DRUG INEFFECTIVE [None]
  - AMENORRHOEA [None]
  - HAEMORRHAGE IN PREGNANCY [None]
